FAERS Safety Report 8614078-2 (Version None)
Quarter: 2012Q3

REPORT INFORMATION
  Report Type: 
  Country: None (occurrence: None)
  Receive Date: 20120823
  Receipt Date: 20120726
  Transmission Date: 20120928
  Serious: No
  Sender: FDA-Public Use
  Company Number: US-009507513-1207USA012048

PATIENT

DRUGS (1)
  1. VICTRELIS [Suspect]
     Dosage: UNK MG, UNK
     Route: 048

REACTIONS (3)
  - THROMBOCYTOPENIA [None]
  - RASH [None]
  - ANAEMIA [None]
